FAERS Safety Report 17420030 (Version 2)
Quarter: 2021Q1

REPORT INFORMATION
  Report Type: Spontaneous
  Country: US (occurrence: US)
  Receive Date: 20200214
  Receipt Date: 20210119
  Transmission Date: 20210419
  Serious: Yes (Other)
  Sender: FDA-Public Use
  Company Number: US-PFIZER INC-2020064570

PATIENT
  Age: 48 Year
  Sex: Female
  Weight: 49 kg

DRUGS (2)
  1. PREGABALIN. [Suspect]
     Active Substance: PREGABALIN
     Indication: NERVE INJURY
     Dosage: 150 MG, 3X/DAY
     Route: 048
     Dates: start: 20190909, end: 201911
  2. PREGABALIN. [Suspect]
     Active Substance: PREGABALIN
     Indication: INJURY

REACTIONS (4)
  - Diarrhoea [Recovered/Resolved]
  - Hypokalaemia [Recovered/Resolved]
  - Intentional product misuse [Recovered/Resolved]
  - Pruritus [Unknown]
